FAERS Safety Report 19753042 (Version 1)
Quarter: 2021Q3

REPORT INFORMATION
  Report Type: Spontaneous
  Country: JM (occurrence: JM)
  Receive Date: 20210826
  Receipt Date: 20210826
  Transmission Date: 20211014
  Serious: Yes (Death, Other)
  Sender: FDA-Public Use
  Company Number: JM-009507513-2108JAM006533

PATIENT
  Age: 53 Year
  Sex: Female

DRUGS (1)
  1. KEYTRUDA [Suspect]
     Active Substance: PEMBROLIZUMAB
     Indication: METASTATIC MALIGNANT MELANOMA
     Dosage: 200 MG EVERY 3 WEEKS (Q3W), STRENGTH 100 MG
     Route: 042
     Dates: start: 20210522

REACTIONS (1)
  - Death [Fatal]

NARRATIVE: CASE EVENT DATE: 20210816
